FAERS Safety Report 7367191-4 (Version None)
Quarter: 2011Q1

REPORT INFORMATION
  Report Type: 
  Country: None (occurrence: None)
  Receive Date: 20110311
  Receipt Date: 20110308
  Transmission Date: 20110831
  Serious: Yes (Hospitalization)
  Sender: FDA-Public Use
  Company Number: GER/UKI/10/0013361

PATIENT
  Age: 73 Year
  Sex: Female

DRUGS (11)
  1. OMEPRAZOLE [Suspect]
     Indication: BARRETT'S OESOPHAGUS
     Dosage: ORAL
     Route: 048
     Dates: start: 19990101, end: 20080101
  2. OMEPRAZOLE [Suspect]
     Indication: BARRETT'S OESOPHAGUS
     Dosage: 20 MG, 1 IN 1 D
  3. RANITIDINE [Suspect]
     Indication: PRODUCT USED FOR UNKNOWN INDICATION
  4. MAGNESIUM SULFATE [Concomitant]
  5. ALFACALCIDOL(ALFACALCIDOL) [Concomitant]
  6. CALCICHEW D3 (LEKOVIT CA) [Concomitant]
  7. CIMETIDINE [Concomitant]
  8. FUROSEMIDE [Concomitant]
  9. LANSOPRAZOLE [Suspect]
     Indication: GASTROOESOPHAGEAL REFLUX DISEASE
     Dates: start: 19940101, end: 19990101
  10. PANTOPRAZOLE [Suspect]
     Indication: BARRETT'S OESOPHAGUS
     Dosage: 40 MG, 1 IN 1 D, ORAL
     Route: 048
     Dates: start: 20080101, end: 20080101
  11. MAGNESIUM (MAGNESIUM) [Concomitant]

REACTIONS (16)
  - METABOLIC DISORDER [None]
  - SYNCOPE [None]
  - RASH [None]
  - CHEST PAIN [None]
  - ABDOMINAL PAIN [None]
  - HYPOCALCAEMIA [None]
  - ARTHRALGIA [None]
  - PARAESTHESIA [None]
  - RASH PRURITIC [None]
  - GAIT DISTURBANCE [None]
  - LETHARGY [None]
  - BALANCE DISORDER [None]
  - MUSCLE SPASMS [None]
  - FALL [None]
  - TETANY [None]
  - HYPOMAGNESAEMIA [None]
